FAERS Safety Report 6058318-5 (Version None)
Quarter: 2009Q1

REPORT INFORMATION
  Report Type: 
  Country: None (occurrence: None)
  Receive Date: 20090122
  Receipt Date: 20090116
  Transmission Date: 20090719
  Serious: Yes (Hospitalization)
  Sender: FDA-Public Use
  Company Number: 200914550

PATIENT
  Age: 77 Year
  Sex: Female

DRUGS (2)
  1. SANDOGLOBULIN [Suspect]
     Indication: PERIPHERAL MOTOR NEUROPATHY
     Dosage: IV
     Route: 042
     Dates: start: 20081124, end: 20081124
  2. SANDOGLOBULIN [Suspect]

REACTIONS (4)
  - ABDOMINAL PAIN [None]
  - CHILLS [None]
  - HYPERTENSION [None]
  - PYREXIA [None]
